FAERS Safety Report 8202813-7 (Version None)
Quarter: 2012Q1

REPORT INFORMATION
  Report Type: 
  Country: None (occurrence: None)
  Receive Date: 20120312
  Receipt Date: 20120312
  Transmission Date: 20120608
  Serious: Yes (Death)
  Sender: FDA-Public Use
  Company Number: None

PATIENT
  Age: 77 Year
  Sex: Male
  Weight: 74.5 kg

DRUGS (2)
  1. EFFIENT [Suspect]
     Indication: ACUTE CORONARY SYNDROME
     Dosage: 10MG
     Route: 048
     Dates: start: 20120128, end: 20120302
  2. EFFIENT [Concomitant]
     Dosage: 10MG
     Route: 048
     Dates: start: 20120128, end: 20120302

REACTIONS (2)
  - SUBARACHNOID HAEMORRHAGE [None]
  - RUPTURED CEREBRAL ANEURYSM [None]
